FAERS Safety Report 24060014 (Version 1)
Quarter: 2024Q3

REPORT INFORMATION
  Report Type: Spontaneous
  Country: SE (occurrence: None)
  Receive Date: 20240704
  Receipt Date: 20240704
  Transmission Date: 20241016
  Serious: Yes (Other)
  Sender: Public
  Company Number: None

PATIENT
  Age: 73 Year
  Sex: Female

DRUGS (5)
  1. CYPROHEPTADINE HYDROCHLORIDE [Suspect]
     Active Substance: CYPROHEPTADINE HYDROCHLORIDE
     Indication: Hypertension
     Dosage: 2 MG
     Route: 065
  2. AMLODIPINE [Concomitant]
     Active Substance: AMLODIPINE BESYLATE
  3. METOPROLOL [Concomitant]
     Active Substance: METOPROLOL
  4. MIDAZOLAM [Concomitant]
     Active Substance: MIDAZOLAM
  5. ESCITALOPRAM [Concomitant]
     Active Substance: ESCITALOPRAM OXALATE

REACTIONS (10)
  - Rebound effect [None]
  - Hypertension [None]
  - Serotonin syndrome [None]
  - Atrial fibrillation [None]
  - Ventricular tachycardia [None]
  - Electrocardiogram ST segment depression [None]
  - Renal failure [None]
  - Haemodialysis [None]
  - Blood pressure decreased [None]
  - Anuria [None]
